FAERS Safety Report 10219746 (Version 1)
Quarter: 2014Q2

REPORT INFORMATION
  Report Type: Spontaneous
  Country: CN (occurrence: CN)
  Receive Date: 20140605
  Receipt Date: 20140605
  Transmission Date: 20141212
  Serious: Yes (Death)
  Sender: FDA-Public Use
  Company Number: CN-WATSON-2014-12383

PATIENT
  Age: 64 Year
  Sex: Male

DRUGS (1)
  1. CEFUROXIME SODIUM [Suspect]
     Indication: TRACHEITIS
     Dosage: 4.5 G, UNK
     Route: 042

REACTIONS (2)
  - Alcohol intolerance [Fatal]
  - Alcohol interaction [Fatal]
